FAERS Safety Report 7141510-6 (Version None)
Quarter: 2010Q4

REPORT INFORMATION
  Report Type: 
  Country: None (occurrence: None)
  Receive Date: 20101126
  Receipt Date: 20101112
  Transmission Date: 20110411
  Serious: Yes (Death)
  Sender: FDA-Public Use
  Company Number: 1000017385

PATIENT
  Age: 87 Year
  Sex: Male

DRUGS (3)
  1. MEMANTINE HCL [Suspect]
     Indication: DEMENTIA ALZHEIMER'S TYPE
     Dosage: 20 MG (10 MG, 2 IN 1 D), ORAL5 MG (5 MG, 1 IN 1 D), ORAL
     Route: 048
     Dates: start: 20100706
  2. MEMANTINE HCL [Suspect]
     Indication: DEMENTIA ALZHEIMER'S TYPE
     Dosage: 20 MG (10 MG, 2 IN 1 D), ORAL5 MG (5 MG, 1 IN 1 D), ORAL
     Route: 048
     Dates: start: 20100805
  3. CALCIUM ANTAGONIST [Concomitant]

REACTIONS (1)
  - LUNG INFECTION [None]
